FAERS Safety Report 5126942-X (Version None)
Quarter: 2006Q4

REPORT INFORMATION
  Report Type: 
  Country: None (occurrence: None)
  Receive Date: 20061010
  Receipt Date: 20060915
  Transmission Date: 20070319
  Serious: Yes (Hospitalization)
  Sender: FDA-Public Use
  Company Number: 2006BI012514

PATIENT
  Age: 40 Year
  Sex: Female

DRUGS (2)
  1. AVONEX [Suspect]
     Indication: MULTIPLE SCLEROSIS
     Dosage: 30 UG;QW;IM
     Route: 030
     Dates: start: 20001201
  2. BRONCHODILATATOR [Concomitant]

REACTIONS (5)
  - ANAEMIA [None]
  - BLOOD FIBRINOGEN INCREASED [None]
  - COLITIS ULCERATIVE [None]
  - INTESTINAL ISCHAEMIA [None]
  - WHITE BLOOD CELL COUNT INCREASED [None]
